FAERS Safety Report 21977717 (Version 1)
Quarter: 2023Q1

REPORT INFORMATION
  Report Type: Spontaneous
  Country: CA (occurrence: None)
  Receive Date: 20230210
  Receipt Date: 20230210
  Transmission Date: 20230418
  Serious: Yes (Other)
  Sender: FDA-Public Use
  Company Number: CA-ROCHE-3276898

PATIENT
  Age: 43 Year
  Sex: Female

DRUGS (2)
  1. OCRELIZUMAB [Suspect]
     Active Substance: OCRELIZUMAB
     Indication: Product used for unknown indication
     Route: 065
  2. AUBAGIO [Suspect]
     Active Substance: TERIFLUNOMIDE
     Indication: Multiple sclerosis
     Route: 065

REACTIONS (11)
  - Alopecia [Unknown]
  - COVID-19 [Unknown]
  - Contusion [Unknown]
  - Cough [Unknown]
  - Ecchymosis [Unknown]
  - Illness [Unknown]
  - Laryngitis [Unknown]
  - Malaise [Unknown]
  - Neoplasm malignant [Unknown]
  - Pain [Unknown]
  - Sinusitis [Unknown]
